FAERS Safety Report 10042238 (Version 2)
Quarter: 2014Q1

REPORT INFORMATION
  Report Type: Report from Study
  Country: DE (occurrence: DE)
  Receive Date: 20140327
  Receipt Date: 20140327
  Transmission Date: 20141002
  Serious: Yes (Hospitalization)
  Sender: FDA-Public Use
  Company Number: DE-ABBVIE-10P-062-0675099-00

PATIENT
  Age: 53 Year
  Sex: Male
  Weight: 112 kg

DRUGS (5)
  1. HUMIRA [Suspect]
     Indication: CROHN^S DISEASE
     Route: 058
  2. METEX [Concomitant]
     Indication: CROHN^S DISEASE
  3. DECORTIN H [Concomitant]
     Indication: CROHN^S DISEASE
  4. MAZAVANT [Concomitant]
     Indication: CROHN^S DISEASE
  5. MONO-EMBOLEX [Concomitant]
     Indication: PRODUCT USED FOR UNKNOWN INDICATION
     Route: 058

REACTIONS (1)
  - Bursitis [Recovering/Resolving]
